FAERS Safety Report 10973379 (Version 1)
Quarter: 2015Q1

REPORT INFORMATION
  Report Type: Spontaneous
  Country: US (occurrence: None)
  Receive Date: 20150331
  Receipt Date: 20150331
  Transmission Date: 20150721
  Serious: No
  Sender: FDA-Public Use
  Company Number: None

PATIENT
  Age: 55 Year
  Sex: Male

DRUGS (1)
  1. ATENOLOL. [Suspect]
     Active Substance: ATENOLOL

REACTIONS (4)
  - Medication error [None]
  - Drug dispensing error [None]
  - Intercepted drug dispensing error [None]
  - Product identification number issue [None]

NARRATIVE: CASE EVENT DATE: 20150324
